FAERS Safety Report 4388625-3 (Version None)
Quarter: 2004Q2

REPORT INFORMATION
  Report Type: 
  Country: None (occurrence: None)
  Receive Date: 20040624
  Receipt Date: 20040611
  Transmission Date: 20050107
  Serious: Yes (Hospitalization)
  Sender: FDA-Public Use
  Company Number: US-JNJFOC-20040603386

PATIENT
  Age: 55 Year
  Sex: Female

DRUGS (6)
  1. DURAGESIC [Suspect]
     Indication: PAIN
     Dosage: SEE IMAGE
     Route: 062
  2. KADIAN [Suspect]
     Indication: PAIN
     Dosage: 30 MG , 1 IN 1 AS NECESSARY, ORAL
     Route: 048
  3. TRAZODONE HCL [Concomitant]
  4. FLUOXETINE [Concomitant]
  5. BABAPENTIN (GABAPENTIN) [Concomitant]
  6. ALPRAZOLAM [Concomitant]

REACTIONS (16)
  - ABDOMINAL WALL ABSCESS [None]
  - ASTERIXIS [None]
  - BLOOD ALBUMIN DECREASED [None]
  - BLOOD MAGNESIUM DECREASED [None]
  - BLOOD POTASSIUM DECREASED [None]
  - CONFUSIONAL STATE [None]
  - CONSTIPATION [None]
  - DEHYDRATION [None]
  - DELIRIUM [None]
  - DELUSION [None]
  - DISORIENTATION [None]
  - DISTURBANCE IN ATTENTION [None]
  - MENTAL IMPAIRMENT [None]
  - MYOCLONUS [None]
  - PAIN [None]
  - SEDATION [None]
